FAERS Safety Report 24184889 (Version 1)
Quarter: 2024Q3

REPORT INFORMATION
  Report Type: Spontaneous
  Country: CA (occurrence: None)
  Receive Date: 20240807
  Receipt Date: 20240807
  Transmission Date: 20241017
  Serious: Yes (Disabling)
  Sender: ASTRAZENECA
  Company Number: 2020SF27422

PATIENT
  Age: 60 Year
  Sex: Male

DRUGS (10)
  1. BUDESONIDE [Suspect]
     Active Substance: BUDESONIDE
     Indication: Colitis ulcerative
     Route: 048
  2. BUDESONIDE [Suspect]
     Active Substance: BUDESONIDE
     Indication: Crohn^s disease
     Route: 048
  3. HUMIRA [Suspect]
     Active Substance: ADALIMUMAB
     Indication: Crohn^s disease
     Dosage: 40MG/0.8ML
     Route: 058
  4. PENTASA [Concomitant]
     Active Substance: MESALAMINE
     Indication: Colitis ulcerative
     Route: 048
  5. FENTANYL [Concomitant]
     Active Substance: FENTANYL\FENTANYL CITRATE
  6. MIDAZOLAM [Concomitant]
     Active Substance: MIDAZOLAM
  7. VITAMINS [Concomitant]
     Active Substance: VITAMINS
  8. MYFORTIC [Concomitant]
     Active Substance: MYCOPHENOLATE SODIUM
  9. PREDNISONE [Concomitant]
     Active Substance: PREDNISONE
  10. IMURAN [Concomitant]
     Active Substance: AZATHIOPRINE

REACTIONS (8)
  - Drug ineffective [Unknown]
  - Abnormal loss of weight [Unknown]
  - Defaecation urgency [Unknown]
  - Diarrhoea [Unknown]
  - Frequent bowel movements [Unknown]
  - Abdominal pain [Unknown]
  - Product use in unapproved indication [Unknown]
  - Off label use [Unknown]

NARRATIVE: CASE EVENT DATE: 20170101
